FAERS Safety Report 19629150 (Version 1)
Quarter: 2021Q3

REPORT INFORMATION
  Report Type: Spontaneous
  Country: US (occurrence: US)
  Receive Date: 20210729
  Receipt Date: 20210729
  Transmission Date: 20211014
  Serious: No
  Sender: FDA-Public Use
  Company Number: US-NEOPHARMA INC-000609

PATIENT
  Sex: Male

DRUGS (2)
  1. XALKORI [Interacting]
     Active Substance: CRIZOTINIB
     Indication: PRODUCT USED FOR UNKNOWN INDICATION
  2. AMOXICILLIN W/CLAVULANATE [Suspect]
     Active Substance: AMOXICILLIN\CLAVULANATE POTASSIUM
     Indication: INFECTION

REACTIONS (2)
  - Diarrhoea [Unknown]
  - Drug interaction [Unknown]
